FAERS Safety Report 5727535-3 (Version None)
Quarter: 2008Q2

REPORT INFORMATION
  Report Type: 
  Country: None (occurrence: None)
  Receive Date: 20080505
  Receipt Date: 20080502
  Transmission Date: 20081010
  Serious: Yes (Hospitalization)
  Sender: FDA-Public Use
  Company Number: A0672506A

PATIENT
  Age: 52 Year
  Sex: Female
  Weight: 85 kg

DRUGS (1)
  1. ALLI [Suspect]
     Indication: WEIGHT LOSS DIET
     Route: 048
     Dates: start: 20070617

REACTIONS (11)
  - BILE DUCT OBSTRUCTION [None]
  - CHOLELITHIASIS [None]
  - EATING DISORDER [None]
  - FLATULENCE [None]
  - GASTROINTESTINAL DISORDER [None]
  - GASTROOESOPHAGEAL REFLUX DISEASE [None]
  - HYPERSENSITIVITY [None]
  - PAIN [None]
  - PANCREATITIS ACUTE [None]
  - SWELLING [None]
  - WEIGHT INCREASED [None]
